FAERS Safety Report 19975594 (Version 1)
Quarter: 2021Q4

REPORT INFORMATION
  Report Type: Spontaneous
  Country: CZ (occurrence: CZ)
  Receive Date: 20211020
  Receipt Date: 20211020
  Transmission Date: 20220303
  Serious: Yes (Hospitalization, Other)
  Sender: FDA-Public Use
  Company Number: CZ-AMGEN-CZESP2021158080

PATIENT
  Age: 55 Year
  Sex: Female

DRUGS (6)
  1. APREMILAST [Suspect]
     Active Substance: APREMILAST
     Indication: Pyoderma gangrenosum
     Dosage: UNK
     Route: 048
     Dates: start: 201905
  2. AMIODARONE [Concomitant]
     Active Substance: AMIODARONE
  3. BISOPROLOL [Concomitant]
     Active Substance: BISOPROLOL
  4. SULODEXIDE [Concomitant]
     Active Substance: SULODEXIDE
  5. ASPIRIN [Concomitant]
     Active Substance: ASPIRIN
  6. INSULIN NOS [Concomitant]
     Active Substance: INSULIN NOS

REACTIONS (3)
  - Peripheral arterial occlusive disease [Unknown]
  - Limb amputation [Unknown]
  - Off label use [Unknown]

NARRATIVE: CASE EVENT DATE: 20190501
